FAERS Safety Report 20411351 (Version 1)
Quarter: 2022Q1

REPORT INFORMATION
  Report Type: Spontaneous
  Country: US (occurrence: None)
  Receive Date: 20220201
  Receipt Date: 20220201
  Transmission Date: 20220423
  Serious: No
  Sender: FDA-Public Use
  Company Number: None

PATIENT
  Age: 49 Year
  Sex: Female

DRUGS (1)
  1. TALTZ [Suspect]
     Active Substance: IXEKIZUMAB
     Indication: Ankylosing spondylitis
     Dosage: OTHER QUANTITY : 180MG WK0/80MGWKLY;?FREQUENCY : WEEKLY;?INJECT 160MG (2 SYRINGES) SUBCUTANEOUSLY AT
     Route: 058
     Dates: start: 202104

REACTIONS (2)
  - COVID-19 [None]
  - Irritable bowel syndrome [None]
